FAERS Safety Report 7085952-6 (Version None)
Quarter: 2010Q4

REPORT INFORMATION
  Report Type: 
  Country: None (occurrence: None)
  Receive Date: 20101105
  Receipt Date: 20101101
  Transmission Date: 20110411
  Serious: Yes (Hospitalization)
  Sender: FDA-Public Use
  Company Number: US-SANOFI-AVENTIS-2010SA067087

PATIENT
  Sex: Female

DRUGS (2)
  1. LANTUS [Suspect]
     Dosage: 42 UNITS IN THE AM, AND 42 UNITS IN PM.
     Route: 058
  2. NOVOLOG MIX 70/30 [Suspect]

REACTIONS (1)
  - DIABETIC KETOACIDOSIS [None]
